FAERS Safety Report 16304635 (Version 1)
Quarter: 2019Q2

REPORT INFORMATION
  Report Type: Spontaneous
  Country: GR (occurrence: GR)
  Receive Date: 20190513
  Receipt Date: 20190513
  Transmission Date: 20190711
  Serious: Yes (Other)
  Sender: FDA-Public Use
  Company Number: GR-MYLANLABS-2018M1016485

PATIENT
  Age: 41 Year
  Sex: Female

DRUGS (1)
  1. METHOTREXATE. [Suspect]
     Active Substance: METHOTREXATE
     Indication: RHEUMATOID ARTHRITIS
     Dosage: UNK

REACTIONS (7)
  - Cytomegalovirus test positive [Unknown]
  - Pyrexia [Unknown]
  - Hepatomegaly [Unknown]
  - Hypochromic anaemia [Unknown]
  - Infectious mononucleosis [Unknown]
  - Hyperplasia [Unknown]
  - Lymphadenopathy [Unknown]
